FAERS Safety Report 9955564 (Version 1)
Quarter: 2014Q1

REPORT INFORMATION
  Report Type: Report from Study
  Country: US (occurrence: US)
  Receive Date: 20140304
  Receipt Date: 20140304
  Transmission Date: 20141002
  Serious: No
  Sender: FDA-Public Use
  Company Number: US-ABBVIE-13P-163-1084182-00

PATIENT
  Age: 35 Year
  Sex: Female

DRUGS (4)
  1. HUMIRA [Suspect]
     Indication: COLITIS ULCERATIVE
     Dates: start: 201301
  2. FOLIC ACID [Concomitant]
     Indication: COLITIS ULCERATIVE
     Dosage: ONCE DAILY
     Dates: start: 2005
  3. ASACOL [Concomitant]
     Indication: COLITIS ULCERATIVE
     Dosage: 2, 3 TIMES DAILY
     Dates: start: 2011
  4. 6MP [Concomitant]
     Indication: PRODUCT USED FOR UNKNOWN INDICATION
     Dates: start: 201210

REACTIONS (1)
  - Rectal haemorrhage [Recovered/Resolved]
